FAERS Safety Report 5726949-5 (Version None)
Quarter: 2008Q2

REPORT INFORMATION
  Report Type: 
  Country: None (occurrence: None)
  Receive Date: 20080501
  Receipt Date: 20070327
  Transmission Date: 20081010
  Serious: Yes (Other)
  Sender: FDA-Public Use
  Company Number: PHEH2007US02516

PATIENT
  Age: 52 Year
  Sex: Male

DRUGS (3)
  1. DIOVAN HCT [Suspect]
     Indication: HYPERTENSION
     Dosage: 160MG VAL/12.5MG HCT, QD, ORAL
     Route: 048
     Dates: start: 20070201
  2. TOPROL-XL [Suspect]
     Indication: HYPERTENSION
     Dosage: 40 MG, QD, ORAL ; 80 MG, QD, ORAL
     Route: 048
     Dates: start: 20050101, end: 20070227
  3. TOPROL-XL [Suspect]
     Indication: HYPERTENSION
     Dosage: 40 MG, QD, ORAL ; 80 MG, QD, ORAL
     Route: 048
     Dates: start: 20070227

REACTIONS (1)
  - HYPERTENSION [None]
